FAERS Safety Report 6498034-9 (Version None)
Quarter: 2009Q4

REPORT INFORMATION
  Report Type: 
  Country: None (occurrence: None)
  Receive Date: 20091215
  Receipt Date: 20091204
  Transmission Date: 20100525
  Serious: Yes (Hospitalization, Other)
  Sender: FDA-Public Use
  Company Number: PHHY2009JP53616

PATIENT
  Sex: Male

DRUGS (6)
  1. DIOVAN [Suspect]
     Dosage: 40 MG, QD
     Route: 048
     Dates: start: 20071106, end: 20080118
  2. SELEGILINE HYDROCHLORIDE [Concomitant]
     Dosage: UNK
     Route: 048
     Dates: start: 20040218
  3. MADOPAR [Concomitant]
     Dosage: 3 DF
     Route: 048
     Dates: start: 20040218
  4. SYMMETREL [Concomitant]
     Dosage: 150 MG, UNK
     Route: 048
     Dates: start: 20040218
  5. PRAMIPEXOLE DIHYDROCHLORIDE [Concomitant]
     Dosage: UNK
     Route: 048
     Dates: start: 20040218
  6. WARFARIN SODIUM [Concomitant]
     Dosage: 2 MG, UNK
     Route: 048

REACTIONS (2)
  - BRAIN NATRIURETIC PEPTIDE INCREASED [None]
  - CARDIAC FAILURE [None]
